FAERS Safety Report 9018646 (Version 1)
Quarter: 2013Q1

REPORT INFORMATION
  Report Type: Spontaneous
  Country: US (occurrence: US)
  Receive Date: 20130118
  Receipt Date: 20130118
  Transmission Date: 20140127
  Serious: Yes (Other)
  Sender: FDA-Public Use
  Company Number: US-PFIZER INC-2013020633

PATIENT
  Age: 57 Year
  Sex: Male
  Weight: 126.98 kg

DRUGS (1)
  1. ADVIL MIGRAINE [Suspect]
     Indication: HEADACHE
     Dosage: 200 MG, 1X/DAY
     Route: 048
     Dates: start: 20130112, end: 201301

REACTIONS (4)
  - Urticaria [Unknown]
  - Rash generalised [Unknown]
  - Insomnia [Unknown]
  - Myalgia [Unknown]
